FAERS Safety Report 19056504 (Version 1)
Quarter: 2021Q1

REPORT INFORMATION
  Report Type: Spontaneous
  Country: US (occurrence: US)
  Receive Date: 20210325
  Receipt Date: 20210325
  Transmission Date: 20210420
  Serious: Yes (Death, Life-Threatening, Hospitalization, Other)
  Sender: FDA-Public Use
  Company Number: US-DRREDDYS-USA/USA/21/0133317

PATIENT
  Age: 17 Month
  Sex: Male

DRUGS (2)
  1. NICOTINE POLACRILEX [Suspect]
     Active Substance: NICOTINE
     Indication: PRODUCT USED FOR UNKNOWN INDICATION
     Dosage: 16.5 ML IN VOLUME
     Route: 062
  2. NICOTINE POLACRILEX [Suspect]
     Active Substance: NICOTINE
     Dosage: 16.5 ML IN VOLUME
     Route: 048

REACTIONS (5)
  - Drug level increased [Fatal]
  - Unresponsive to stimuli [Fatal]
  - Accidental overdose [Fatal]
  - Cyanosis [Fatal]
  - Cardiac arrest [Fatal]
